FAERS Safety Report 13012007 (Version 2)
Quarter: 2017Q1

REPORT INFORMATION
  Report Type: Report from Study
  Country: AU (occurrence: AU)
  Receive Date: 20161209
  Receipt Date: 20170317
  Transmission Date: 20170428
  Serious: Yes (Hospitalization)
  Sender: FDA-Public Use
  Company Number: AU-TAKEDA-2016MPI010469

PATIENT
  Age: 68 Year
  Sex: Male
  Weight: 77 kg

DRUGS (19)
  1. TURMERIC                           /01079602/ [Concomitant]
     Active Substance: TURMERIC
     Indication: ROUTINE HEALTH MAINTENANCE
     Dosage: 2 DF, QD
     Route: 048
     Dates: start: 20160616
  2. PARACETAMOL [Concomitant]
     Active Substance: ACETAMINOPHEN
     Indication: BACK PAIN
     Dosage: 1 G, UNK
     Route: 048
     Dates: start: 201602
  3. MAGNESIUM [Concomitant]
     Active Substance: MAGNESIUM
     Indication: PROPHYLAXIS
     Dosage: UNK, QD
     Route: 048
     Dates: start: 20160416
  4. ABT-199 [Suspect]
     Active Substance: VENETOCLAX
     Indication: PLASMA CELL MYELOMA
     Dosage: 800 MG, QD
     Route: 048
     Dates: start: 20160419, end: 20160530
  5. RANITIDINE. [Concomitant]
     Active Substance: RANITIDINE
     Indication: GASTROOESOPHAGEAL REFLUX DISEASE
     Dosage: 150 MG, BID
     Route: 048
     Dates: start: 20160420
  6. VELCADE [Suspect]
     Active Substance: BORTEZOMIB
     Dosage: 1 MG/M2, UNK
     Route: 058
     Dates: start: 20161024
  7. MINIPRESS [Concomitant]
     Active Substance: PRAZOSIN HYDROCHLORIDE
     Indication: PROSTATISM
     Dosage: 0.5 MG, QD
     Route: 048
     Dates: start: 201502
  8. TEMAZEPAM. [Concomitant]
     Active Substance: TEMAZEPAM
     Indication: INSOMNIA
     Dosage: 10 MG, UNK
     Route: 048
     Dates: start: 20160421
  9. BACTRIM DS [Concomitant]
     Active Substance: SULFAMETHOXAZOLE\TRIMETHOPRIM
     Indication: ANTIFUNGAL PROPHYLAXIS
     Dosage: UNK, QD
     Route: 048
     Dates: start: 20160419
  10. INNER HEALTH PLUS [Concomitant]
     Indication: ROUTINE HEALTH MAINTENANCE
     Dosage: UNK, QD
     Route: 048
     Dates: start: 20160530
  11. VELCADE [Suspect]
     Active Substance: BORTEZOMIB
     Dosage: 1 MG/M2, UNK
     Route: 058
     Dates: start: 20160712, end: 20161003
  12. DEXAMETHASONE. [Suspect]
     Active Substance: DEXAMETHASONE
     Indication: PLASMA CELL MYELOMA
     Dosage: 20 MG, UNK
     Route: 048
     Dates: start: 20160419, end: 20160816
  13. DEXAMETHASONE. [Suspect]
     Active Substance: DEXAMETHASONE
     Dosage: 12 MG, UNK
     Route: 048
     Dates: start: 20160817, end: 20161004
  14. DEXAMETHASONE. [Suspect]
     Active Substance: DEXAMETHASONE
     Dosage: 12 MG, UNK
     Route: 048
     Dates: start: 20161024
  15. VELCADE [Suspect]
     Active Substance: BORTEZOMIB
     Indication: PLASMA CELL MYELOMA
     Dosage: UNK
     Route: 058
     Dates: start: 20160419, end: 20160628
  16. ABT-199 [Suspect]
     Active Substance: VENETOCLAX
     Dosage: 600 MG, QD
     Route: 048
     Dates: start: 20160607, end: 20161007
  17. TARGIN [Concomitant]
     Active Substance: NALOXONE HYDROCHLORIDE\OXYCODONE HYDROCHLORIDE
     Indication: BACK PAIN
     Dosage: UNK, BID
     Route: 048
     Dates: start: 20160524
  18. ABT-199 [Suspect]
     Active Substance: VENETOCLAX
     Dosage: 600 MG, QD
     Route: 048
     Dates: start: 20161024
  19. VALTREX [Concomitant]
     Active Substance: VALACYCLOVIR HYDROCHLORIDE
     Indication: ANTIVIRAL PROPHYLAXIS
     Dosage: 500 MG, QD
     Route: 048
     Dates: start: 20160419

REACTIONS (1)
  - Osteomyelitis [Not Recovered/Not Resolved]

NARRATIVE: CASE EVENT DATE: 20161007
